FAERS Safety Report 20682956 (Version 2)
Quarter: 2022Q3

REPORT INFORMATION
  Report Type: Spontaneous
  Country: FR (occurrence: FR)
  Receive Date: 20220407
  Receipt Date: 20220809
  Transmission Date: 20221027
  Serious: Yes (Other)
  Sender: FDA-Public Use
  Company Number: FR-AUROBINDO-AUR-APL-2022-011484

PATIENT
  Sex: Female

DRUGS (3)
  1. RIVASTIGMINE [Suspect]
     Active Substance: RIVASTIGMINE
     Indication: Dementia with Lewy bodies
     Dosage: UNK
     Route: 062
  2. MIRTAZAPINE [Suspect]
     Active Substance: MIRTAZAPINE
     Indication: Product used for unknown indication
     Dosage: 60 MILLIGRAM, ONCE A DAY
     Route: 048
  3. MIRTAZAPINE [Suspect]
     Active Substance: MIRTAZAPINE
     Dosage: 15 MILLIGRAM, TWO TIMES A DAY
     Route: 048

REACTIONS (7)
  - Bradycardia [Unknown]
  - Electrocardiogram QT prolonged [Unknown]
  - Facial bones fracture [Unknown]
  - Syncope [Unknown]
  - Torsade de pointes [Unknown]
  - Fall [Unknown]
  - Product use in unapproved indication [Unknown]
